FAERS Safety Report 14055967 (Version 1)
Quarter: 2017Q4

REPORT INFORMATION
  Report Type: Spontaneous
  Country: US (occurrence: US)
  Receive Date: 20171006
  Receipt Date: 20171006
  Transmission Date: 20180321
  Serious: No
  Sender: FDA-Public Use
  Company Number: US-JNJFOC-20171003964

PATIENT
  Sex: Female
  Weight: 46.27 kg

DRUGS (1)
  1. LEVAQUIN [Suspect]
     Active Substance: LEVOFLOXACIN
     Indication: PRODUCT USED FOR UNKNOWN INDICATION
     Dosage: 10-15 YEARS AGO
     Route: 065

REACTIONS (2)
  - Muscle spasms [Recovered/Resolved]
  - Muscle twitching [Recovered/Resolved]
